FAERS Safety Report 23960370 (Version 1)
Quarter: 2024Q2

REPORT INFORMATION
  Report Type: Spontaneous
  Country: US (occurrence: US)
  Receive Date: 20240611
  Receipt Date: 20240611
  Transmission Date: 20240716
  Serious: Yes (Other)
  Sender: FDA-Public Use
  Company Number: US-GLAXOSMITHKLINE-US2024AMR070250

PATIENT
  Age: 30 Year
  Sex: Female

DRUGS (4)
  1. LAMICTAL [Suspect]
     Active Substance: LAMOTRIGINE
     Indication: Product used for unknown indication
     Dosage: UNK
  2. LAMICTAL [Suspect]
     Active Substance: LAMOTRIGINE
     Dosage: UNK (DECREASED DSE)
  3. CAPLYTA [Suspect]
     Active Substance: LUMATEPERONE
     Indication: Product used for unknown indication
     Dosage: 42 MG, QD
     Route: 048
  4. CAPLYTA [Suspect]
     Active Substance: LUMATEPERONE
     Dosage: UNK (DECREASED DSE)
     Route: 048

REACTIONS (3)
  - Seizure [Recovering/Resolving]
  - Wrist fracture [Unknown]
  - Fall [Unknown]
